FAERS Safety Report 7608585-9 (Version None)
Quarter: 2011Q3

REPORT INFORMATION
  Report Type: 
  Country: None (occurrence: None)
  Receive Date: 20110714
  Receipt Date: 20110711
  Transmission Date: 20111222
  Serious: Yes (Hospitalization)
  Sender: FDA-Public Use
  Company Number: PHHO2007DK07929

PATIENT
  Sex: Female
  Weight: 65 kg

DRUGS (2)
  1. SELEXID [Concomitant]
  2. LETROZOLE [Suspect]
     Indication: BREAST CANCER
     Dosage: 2.5 MG, QD
     Route: 048
     Dates: start: 20051103

REACTIONS (8)
  - INFECTION [None]
  - HAEMOGLOBIN DECREASED [None]
  - HYPOTENSION [None]
  - OSTEONECROSIS [None]
  - PAIN IN EXTREMITY [None]
  - FRACTURE DISPLACEMENT [None]
  - OEDEMA PERIPHERAL [None]
  - FEMUR FRACTURE [None]
